FAERS Safety Report 25963136 (Version 1)
Quarter: 2025Q4

REPORT INFORMATION
  Report Type: Spontaneous
  Country: US (occurrence: None)
  Receive Date: 20251027
  Receipt Date: 20251027
  Transmission Date: 20260118
  Serious: Yes (Hospitalization)
  Sender: UCB
  Company Number: UG-069-000007955

PATIENT
  Age: 68 Year

DRUGS (1)
  1. KEPPRA [Suspect]
     Active Substance: LEVETIRACETAM
     Indication: Seizure
     Dosage: UNK

REACTIONS (4)
  - Brain operation [Unknown]
  - Neoplasm malignant [Unknown]
  - Rash [Not Recovered/Not Resolved]
  - Mood swings [Not Recovered/Not Resolved]
